FAERS Safety Report 12795860 (Version 3)
Quarter: 2017Q1

REPORT INFORMATION
  Report Type: Report from Study
  Country: DE (occurrence: DE)
  Receive Date: 20160929
  Receipt Date: 20170302
  Transmission Date: 20170428
  Serious: Yes (Other)
  Sender: FDA-Public Use
  Company Number: DE-BAYER-2016-140752

PATIENT
  Age: 58 Year
  Sex: Female

DRUGS (4)
  1. BISOLICH [Concomitant]
     Active Substance: BISOPROLOL FUMARATE
     Indication: HYPERTENSION
     Dosage: 5 MG, QD
  2. VALSARTAN. [Concomitant]
     Active Substance: VALSARTAN
     Indication: HYPERTENSION
     Dosage: UNK
  3. BETAFERON [Suspect]
     Active Substance: INTERFERON BETA-1B
     Indication: MULTIPLE SCLEROSIS
     Dosage: 250 ?G, QOD
     Route: 058
     Dates: start: 20000101, end: 20161223
  4. INDAPAMID [Concomitant]
     Active Substance: INDAPAMIDE
     Indication: HYPERTENSION
     Dosage: 1.5 MG, QD

REACTIONS (13)
  - Influenza like illness [Not Recovered/Not Resolved]
  - Blood pressure increased [None]
  - Pain [None]
  - Cardiac disorder [Recovering/Resolving]
  - Injection site reaction [Recovering/Resolving]
  - Dyspnoea [None]
  - Arrhythmia [Recovering/Resolving]
  - Alopecia [None]
  - Influenza like illness [Recovered/Resolved]
  - Pyrexia [None]
  - Liver function test increased [Recovered/Resolved]
  - Chest pain [Recovering/Resolving]
  - Muscle spasms [None]

NARRATIVE: CASE EVENT DATE: 20151001
